FAERS Safety Report 4449019-5 (Version None)
Quarter: 2004Q3

REPORT INFORMATION
  Report Type: 
  Country: None (occurrence: None)
  Receive Date: 20040910
  Receipt Date: 20040901
  Transmission Date: 20050211
  Serious: Yes (Other)
  Sender: FDA-Public Use
  Company Number: 2004231116JP

PATIENT
  Age: 52 Year
  Sex: Female

DRUGS (5)
  1. HYPEN (ETODOLAC) [Concomitant]
  2. MUCOSTA (REBAMIPIDE) [Concomitant]
  3. PARIET (RABEPRAZOLE) [Concomitant]
  4. AZULFIDINE [Suspect]
     Indication: RHEUMATOID ARTHRITIS
     Dosage: SEE IMAGE
     Dates: start: 20040213, end: 20040524
  5. AZULFIDINE [Suspect]
     Indication: RHEUMATOID ARTHRITIS
     Dosage: SEE IMAGE
     Dates: start: 20040525, end: 20040623

REACTIONS (3)
  - DIARRHOEA [None]
  - EOSINOPHILIC PNEUMONIA [None]
  - HAEMORRHAGE SUBCUTANEOUS [None]
